FAERS Safety Report 10232460 (Version 1)
Quarter: 2014Q2

REPORT INFORMATION
  Report Type: Spontaneous
  Country: US (occurrence: None)
  Receive Date: 20140611
  Receipt Date: 20140611
  Transmission Date: 20141212
  Serious: Yes (Other)
  Sender: FDA-Public Use
  Company Number: None

PATIENT
  Age: 73 Year
  Sex: Male
  Weight: 76.66 kg

DRUGS (2)
  1. PREMARIN [Suspect]
     Indication: HYSTERECTOMY
     Route: 067
  2. PREMARIN [Suspect]
     Indication: BLADDER NECK SUSPENSION
     Route: 067

REACTIONS (1)
  - Breast mass [None]
